FAERS Safety Report 14766498 (Version 2)
Quarter: 2018Q2

REPORT INFORMATION
  Report Type: Spontaneous
  Country: FR (occurrence: FR)
  Receive Date: 20180416
  Receipt Date: 20180529
  Transmission Date: 20180711
  Serious: Yes (Hospitalization)
  Sender: FDA-Public Use
  Company Number: FR-TEVA-2018-FR-881744

PATIENT
  Age: 79 Year
  Sex: Male

DRUGS (13)
  1. LECTIL 24 MG, COMPRIM? [Concomitant]
     Dosage: 48 MILLIGRAM DAILY;
     Route: 048
  2. ATORVASTATINE [Concomitant]
     Active Substance: ATORVASTATIN
     Indication: DYSLIPIDAEMIA
     Dosage: 40 MILLIGRAM DAILY;
     Route: 048
  3. FUROSEMIDE. [Concomitant]
     Active Substance: FUROSEMIDE
     Dosage: 40 MG PAR JOUR PUIS 80 MG PAR JOUR
     Dates: start: 20180105, end: 20180117
  4. AMOXICILLIN. [Suspect]
     Active Substance: AMOXICILLIN
     Route: 042
     Dates: start: 20180103, end: 20180108
  5. ACIDE CLAVULANIQUE [Suspect]
     Active Substance: CLAVULANIC ACID
     Route: 042
     Dates: start: 20180103, end: 20180108
  6. PANTOPRAZOLE [Suspect]
     Active Substance: PANTOPRAZOLE
     Dosage: 40 MILLIGRAM DAILY;
     Route: 048
     Dates: start: 20180104, end: 20180108
  7. KARDEGIC [Concomitant]
     Active Substance: ASPIRIN DL-LYSINE
     Route: 048
  8. SPIRIVA RESPIMAT 2,5 MICROGRAMMES/DOSE, SOLUTION POUR INHALATION [Concomitant]
     Dosage: 2 DOSAGE FORMS DAILY;
     Route: 055
     Dates: end: 20180108
  9. BI TILDIEM L.P. 90 MG, COMPRIM? ENROB? ? LIB?RATION PROLONG?E [Concomitant]
     Dosage: 180 MILLIGRAM DAILY;
     Route: 048
     Dates: start: 201704
  10. CETIRIZINE (DICHLORHYDRATE DE) [Concomitant]
     Active Substance: CETIRIZINE HYDROCHLORIDE
     Route: 048
     Dates: end: 20180108
  11. PARACETAMOL [Concomitant]
     Active Substance: ACETAMINOPHEN
     Route: 048
  12. SERETIDE [Concomitant]
     Active Substance: FLUTICASONE PROPIONATE\SALMETEROL XINAFOATE
     Dosage: 2 DOSAGE FORMS DAILY;
     Route: 055
     Dates: end: 20180108
  13. CHLORHYDRATE DE TRAMADOL [Concomitant]
     Active Substance: TRAMADOL HYDROCHLORIDE
     Route: 048
     Dates: start: 20180106, end: 20180117

REACTIONS (1)
  - Neutropenia [Recovered/Resolved]

NARRATIVE: CASE EVENT DATE: 20180108
